FAERS Safety Report 7152098-8 (Version None)
Quarter: 2010Q4

REPORT INFORMATION
  Report Type: 
  Country: None (occurrence: None)
  Receive Date: 20101123
  Receipt Date: 20101110
  Transmission Date: 20110411
  Serious: Yes (Hospitalization)
  Sender: FDA-Public Use
  Company Number: 2010SP059961

PATIENT
  Age: 78 Year
  Sex: Female

DRUGS (3)
  1. TEMODAL [Suspect]
     Indication: GLIOBLASTOMA
     Dosage: 145 MG; 300 MG
     Dates: start: 20100801
  2. TEMODAL [Suspect]
     Indication: GLIOBLASTOMA
     Dosage: 145 MG; 300 MG
     Dates: start: 20101108
  3. VALPROIC ACID [Concomitant]

REACTIONS (2)
  - DEHYDRATION [None]
  - DIARRHOEA [None]
